FAERS Safety Report 6072962-0 (Version None)
Quarter: 2009Q1

REPORT INFORMATION
  Report Type: 
  Country: None (occurrence: None)
  Receive Date: 20090210
  Receipt Date: 20090202
  Transmission Date: 20090719
  Serious: Yes (Other)
  Sender: FDA-Public Use
  Company Number: US-ALLERGAN-0815895US

PATIENT
  Sex: Female
  Weight: 57.007 kg

DRUGS (4)
  1. BOTOX COSMETIC [Suspect]
     Indication: SKIN WRINKLING
     Dosage: UNK, SINGLE
     Dates: start: 20060614, end: 20060614
  2. BOTOX COSMETIC [Suspect]
     Dosage: UNK, SINGLE
     Dates: start: 20060705, end: 20060705
  3. BOTOX COSMETIC [Suspect]
     Dosage: UNK, SINGLE
     Dates: start: 20060916, end: 20060916
  4. BOTOX COSMETIC [Suspect]
     Dosage: UNK, SINGLE
     Dates: start: 20080101, end: 20080101

REACTIONS (2)
  - DRUG INEFFECTIVE [None]
  - MYOPERICARDITIS [None]
